FAERS Safety Report 8389455-8 (Version None)
Quarter: 2012Q2

REPORT INFORMATION
  Report Type: 
  Country: None (occurrence: None)
  Receive Date: 20120528
  Receipt Date: 20120515
  Transmission Date: 20120825
  Serious: Yes (Other)
  Sender: FDA-Public Use
  Company Number: US-ELI_LILLY_AND_COMPANY-US201202002313

PATIENT
  Sex: Female

DRUGS (20)
  1. PREDNISONE TAB [Concomitant]
  2. HEPARIN [Concomitant]
     Indication: CATHETERISATION CARDIAC
  3. PROTONIX [Concomitant]
  4. PATANOL [Concomitant]
  5. THEO-24 [Concomitant]
  6. ADVAIR DISKUS 100/50 [Concomitant]
  7. CLONAZEPAM [Concomitant]
  8. FORTEO [Suspect]
     Dosage: 20 UG, QD
     Route: 058
  9. XOPENEX HFA [Concomitant]
  10. DUONEB [Concomitant]
  11. CLARITIN [Concomitant]
  12. VITAMIN D [Concomitant]
     Dosage: UNK
  13. SINGULAIR [Concomitant]
  14. PULMICORT [Concomitant]
  15. M.V.I. [Concomitant]
  16. FORTEO [Suspect]
     Indication: OSTEOPOROSIS
     Dosage: 20 UG, QD
     Route: 058
  17. LEVOTHYROXINE SODIUM [Concomitant]
  18. MUCINEX [Concomitant]
  19. JANUVIA [Concomitant]
  20. VENTOLIN HFA [Concomitant]

REACTIONS (3)
  - INJECTION SITE HAEMATOMA [None]
  - EMPHYSEMA [None]
  - INJECTION SITE HAEMORRHAGE [None]
